FAERS Safety Report 5035019-3 (Version None)
Quarter: 2006Q2

REPORT INFORMATION
  Report Type: 
  Country: None (occurrence: None)
  Receive Date: 20060518
  Receipt Date: 20050913
  Transmission Date: 20061013
  Serious: Yes (Other)
  Sender: FDA-Public Use
  Company Number: 2005127369

PATIENT
  Age: 21 Year
  Sex: Female
  Weight: 54.4316 kg

DRUGS (2)
  1. DEPO-PROVERA SUSPENSION/INJ [Suspect]
     Indication: CONTRACEPTION
     Dosage: SEE IMAGE
     Dates: start: 20000601, end: 20000601
  2. DEPO-PROVERA SUSPENSION/INJ [Suspect]
     Indication: CONTRACEPTION
     Dosage: SEE IMAGE
     Dates: start: 20040101, end: 20040101

REACTIONS (6)
  - ALOPECIA [None]
  - DENTAL CARIES [None]
  - DIZZINESS [None]
  - HEADACHE [None]
  - MOOD SWINGS [None]
  - WEIGHT INCREASED [None]
